FAERS Safety Report 7655222-3 (Version None)
Quarter: 2011Q3

REPORT INFORMATION
  Report Type: 
  Country: None (occurrence: None)
  Receive Date: 20110729
  Receipt Date: 20110714
  Transmission Date: 20111222
  Serious: Yes (Other)
  Sender: FDA-Public Use
  Company Number: 1000022131

PATIENT
  Age: 47 Year
  Sex: Male
  Weight: 113 kg

DRUGS (15)
  1. DEXAMETHASONE [Suspect]
     Dosage: 20 MG
  2. ERLOTINIB HYDROCHLORIDE [Suspect]
     Dosage: 150 MG(150 MG, 1 IN 1 D), ORAL
     Route: 048
  3. BEVACIZUMAB (BEVACIZUMAB) [Suspect]
     Dosage: 71.2857 MG (1497 MG, 1 IN 3 WK), INTRAVENOUS (NOT OTHERWISE SPECIFIED)
     Route: 042
  4. ALPRAZOLAM [Suspect]
     Dosage: (0.5 MG, AS NEEDED (TWICE A DAY))
  5. LOPERAMIDE [Suspect]
  6. OXYCODONE HCL [Suspect]
     Indication: PAIN
     Dosage: (5 MG, EVERY 4 HOURS AS NEEDED)
  7. VITAMIN K TAB [Suspect]
  8. DIPHENHYDRAMINE HCL [Suspect]
     Dosage: 25 MG
  9. WARFARIN SODIUM [Suspect]
  10. CARBOPLATIN [Concomitant]
     Dosage: (285 MG), INTRAVENOUS (NOT OTHERWISE SPECIFIED)
     Route: 042
  11. DARBEPOETIN ALFA (DARBEPOETIN ALFA) [Suspect]
     Dosage: SUBCUTANEOUS
     Route: 058
  12. GRANISETRON [Suspect]
     Dosage: (1 MG), INTRAVENOUS
     Route: 036
  13. PACLITAXEL [Suspect]
     Dosage: (130 MG) INTRAVENOUS
     Route: 042
  14. CITALOPRAM HYDROBROMIDE [Suspect]
     Dosage: 10 MG(10 MG, 1 IN 1 D)
  15. CIMETIDINE [Suspect]
     Dosage: (300 MG), INTRAVENOUS (NOT OTHERWISE SPECIFIED)
     Route: 042

REACTIONS (8)
  - CONTUSION [None]
  - INTERNATIONAL NORMALISED RATIO INCREASED [None]
  - RASH [None]
  - EMBOLISM VENOUS [None]
  - DIARRHOEA [None]
  - HAEMATOMA [None]
  - DRUG INTERACTION [None]
  - SWELLING [None]
